FAERS Safety Report 6717976 (Version 3)
Quarter: 2019Q2

REPORT INFORMATION
  Report Type: Spontaneous
  Country: FR (occurrence: FR)
  Receive Date: 20080804
  Receipt Date: 20190415
  Transmission Date: 20190711
  Serious: Yes (Hospitalization, Other)
  Sender: FDA-Public Use
  Company Number: FR-PFIZER INC-2008063567

PATIENT
  Age: 59 Year
  Sex: Male

DRUGS (7)
  1. CAMPTO [Suspect]
     Active Substance: IRINOTECAN
     Indication: COLON CANCER
     Dosage: UNK UNK, CYCLIC
     Route: 042
     Dates: start: 200509, end: 200803
  2. FLUOROURACIL. [Suspect]
     Active Substance: FLUOROURACIL
     Indication: COLON CANCER
     Dosage: UNK UNK, CYCLIC
     Route: 042
     Dates: start: 200404, end: 200802
  3. ERBITUX [Suspect]
     Active Substance: CETUXIMAB
     Indication: COLON CANCER
     Dosage: UNK UNK, CYCLIC
     Route: 042
     Dates: start: 200610
  4. AVASTIN [Suspect]
     Active Substance: BEVACIZUMAB
     Indication: COLON CANCER
     Dosage: UNK, CYCLIC
     Route: 042
     Dates: start: 200509, end: 200609
  5. ELOXATIN [Suspect]
     Active Substance: OXALIPLATIN
     Indication: COLON CANCER
     Dosage: UNK UNK, CYCLIC
     Route: 042
     Dates: start: 200404, end: 200410
  6. CALCIUM FOLINATE [Suspect]
     Active Substance: LEUCOVORIN CALCIUM
     Indication: COLON CANCER
     Dosage: UNK UNK, CYCLIC
     Dates: start: 2005, end: 200609
  7. ENDOXAN [CYCLOPHOSPHAMIDE] [Suspect]
     Active Substance: CYCLOPHOSPHAMIDE
     Indication: COLON CANCER
     Dosage: UNK, CYCLIC
     Route: 042
     Dates: start: 20061114, end: 200802

REACTIONS (5)
  - Varices oesophageal [Not Recovered/Not Resolved]
  - Melaena [Unknown]
  - Abdominal pain [Unknown]
  - Portal hypertension [Not Recovered/Not Resolved]
  - Nodular regenerative hyperplasia [Not Recovered/Not Resolved]

NARRATIVE: CASE EVENT DATE: 20080215
